FAERS Safety Report 18053397 (Version 2)
Quarter: 2020Q3

REPORT INFORMATION
  Report Type: Spontaneous
  Country: LT (occurrence: LT)
  Receive Date: 20200722
  Receipt Date: 20200803
  Transmission Date: 20201103
  Serious: Yes (Hospitalization, Other)
  Sender: FDA-Public Use
  Company Number: LT-PFIZER INC-2020260475

PATIENT
  Age: 22 Year
  Sex: Female
  Weight: 50 kg

DRUGS (1)
  1. VENLAFAXINE HCL [Suspect]
     Active Substance: VENLAFAXINE HYDROCHLORIDE
     Dosage: 1050 MG (7 TABLETS)
     Route: 048
     Dates: end: 20200615

REACTIONS (5)
  - Dry mouth [Recovered/Resolved]
  - Intentional overdose [Recovered/Resolved]
  - Suicide attempt [Unknown]
  - Tremor [Recovered/Resolved]
  - Hyperhidrosis [Recovered/Resolved]

NARRATIVE: CASE EVENT DATE: 20200614
